FAERS Safety Report 10009903 (Version 1)
Quarter: 2014Q1

REPORT INFORMATION
  Report Type: Spontaneous
  Country: US (occurrence: US)
  Receive Date: 20140312
  Receipt Date: 20140312
  Transmission Date: 20141002
  Serious: No
  Sender: FDA-Public Use
  Company Number: US-INCYTE CORPORATION-2013IN000478

PATIENT
  Age: 78 Year
  Sex: Male

DRUGS (6)
  1. JAKAFI [Suspect]
     Indication: MYELOFIBROSIS
     Dosage: 20 MG, BID
     Route: 048
     Dates: start: 20121225, end: 20130306
  2. JAKAFI [Suspect]
     Dosage: 10 MG, BID
     Route: 048
     Dates: start: 20130306
  3. HYDROCHLOROTHIAZIDE W/LOSARTAN [Concomitant]
  4. LEXAPRO [Concomitant]
  5. MORPHINE [Concomitant]
  6. RITALIN [Concomitant]

REACTIONS (2)
  - Fatigue [Unknown]
  - Drug administration error [Unknown]
